FAERS Safety Report 10513640 (Version 2)
Quarter: 2014Q4

REPORT INFORMATION
  Report Type: Report from Study
  Country: DE (occurrence: DE)
  Receive Date: 20141013
  Receipt Date: 20141013
  Transmission Date: 20150528
  Serious: Yes (Other)
  Sender: FDA-Public Use
  Company Number: PHHY2014DE085260

PATIENT
  Sex: Male
  Weight: 79 kg

DRUGS (6)
  1. PANTOPRAZOLE [Concomitant]
     Active Substance: PANTOPRAZOLE SODIUM
     Indication: PROPHYLAXIS
     Dosage: 40 MG, UNK
     Route: 048
     Dates: start: 20130629
  2. ICL670A [Suspect]
     Active Substance: DEFERASIROX
     Dosage: 1000 MG, UNK
     Route: 065
     Dates: start: 20131118
  3. AZACITIDINE. [Concomitant]
     Active Substance: AZACITIDINE
     Indication: MYELODYSPLASTIC SYNDROME
     Dosage: 75 MG/M2, UNK
     Route: 058
     Dates: start: 20130801
  4. ICL670A [Suspect]
     Active Substance: DEFERASIROX
     Dosage: 1000 MG/80 KG/DAY
     Route: 065
     Dates: start: 20130914, end: 20131022
  5. ICL670A [Suspect]
     Active Substance: DEFERASIROX
     Indication: MYELODYSPLASTIC SYNDROME
     Dosage: 500 MG / 80 KG DAY
     Route: 065
     Dates: start: 20130903, end: 20130913
  6. ICL670A [Suspect]
     Active Substance: DEFERASIROX
     Dosage: 1500 MG, UNK
     Route: 065
     Dates: start: 20131023, end: 20131117

REACTIONS (1)
  - Creatinine renal clearance decreased [Recovered/Resolved]

NARRATIVE: CASE EVENT DATE: 20131125
